FAERS Safety Report 7077426-3 (Version None)
Quarter: 2010Q4

REPORT INFORMATION
  Report Type: 
  Country: None (occurrence: None)
  Receive Date: 20101021
  Receipt Date: 20101005
  Transmission Date: 20110411
  Serious: Yes (Hospitalization)
  Sender: FDA-Public Use
  Company Number: 1000016719

PATIENT
  Age: 22 Year
  Sex: Female

DRUGS (3)
  1. LEXAPRO [Suspect]
     Indication: ATTENTION DEFICIT/HYPERACTIVITY DISORDER
     Dosage: 15 MG (15 MG, 1 IN 1 D), ORAL
     Route: 048
     Dates: start: 20100729, end: 20100827
  2. NITRAZEPAM (NITRAZEPAM) (NITRAZEPAM) [Concomitant]
  3. DEXAMPHETAMINE (DEXAMPHETAMINE SULFATE) (DEXAMPHETAMINE SULFATE) [Concomitant]

REACTIONS (2)
  - GASTRITIS EROSIVE [None]
  - HAEMATEMESIS [None]
